FAERS Safety Report 13559784 (Version 1)
Quarter: 2017Q2

REPORT INFORMATION
  Report Type: Spontaneous
  Country: US (occurrence: US)
  Receive Date: 20170518
  Receipt Date: 20170518
  Transmission Date: 20170830
  Serious: Yes (Other)
  Sender: FDA-Public Use
  Company Number: US-AMGEN-USASP2017066077

PATIENT
  Age: 70 Year
  Sex: Male
  Weight: 113.83 kg

DRUGS (1)
  1. REPATHA [Suspect]
     Active Substance: EVOLOCUMAB
     Indication: HYPERLIPIDAEMIA
     Dosage: 140 MG, Q2WK
     Route: 058
     Dates: start: 20170228

REACTIONS (3)
  - Influenza like illness [Unknown]
  - Heart rate irregular [Unknown]
  - Arthralgia [Unknown]

NARRATIVE: CASE EVENT DATE: 20170301
